FAERS Safety Report 22304520 (Version 1)
Quarter: 2023Q2

REPORT INFORMATION
  Report Type: Spontaneous
  Country: US (occurrence: US)
  Receive Date: 20230510
  Receipt Date: 20230510
  Transmission Date: 20230722
  Serious: No
  Sender: FDA-Public Use
  Company Number: US-Ipsen Biopharmaceuticals, Inc.-2023-09965

PATIENT
  Sex: Male

DRUGS (14)
  1. DYSPORT [Suspect]
     Active Substance: ABOBOTULINUMTOXINA
     Indication: Torticollis
     Dosage: 3MONTHS
     Route: 030
     Dates: start: 20151020, end: 20151020
  2. ASPIRIN [Concomitant]
     Active Substance: ASPIRIN
  3. ATENOLOL [Concomitant]
     Active Substance: ATENOLOL
  4. CARAFATE [Concomitant]
     Active Substance: SUCRALFATE
     Dosage: 1GM/10ML
  5. CALCIUM CITRATE [Concomitant]
     Active Substance: CALCIUM CITRATE
  6. COMBIVENT [Concomitant]
     Active Substance: ALBUTEROL SULFATE\IPRATROPIUM BROMIDE
  7. ESZOPICLONE [Concomitant]
     Active Substance: ESZOPICLONE
  8. KETOCONAZOLE [Concomitant]
     Active Substance: KETOCONAZOLE
  9. HIGH DENSITY POLYETHYLENE [Concomitant]
     Active Substance: HIGH DENSITY POLYETHYLENE
  10. RANITIDINE [Concomitant]
     Active Substance: RANITIDINE
  11. SIMVASTATIN [Concomitant]
     Active Substance: SIMVASTATIN
  12. TUMS ULTRA [Concomitant]
     Active Substance: CALCIUM CARBONATE
  13. VITAMIN B12 [Concomitant]
     Active Substance: CYANOCOBALAMIN
  14. VITAMIN D NOS [Concomitant]
     Active Substance: VITAMIN D NOS

REACTIONS (1)
  - Pancreatic disorder [Unknown]
